FAERS Safety Report 17328489 (Version 1)
Quarter: 2020Q1

REPORT INFORMATION
  Report Type: Spontaneous
  Country: US (occurrence: US)
  Receive Date: 20200124
  Receipt Date: 20200124
  Transmission Date: 20200409
  Serious: Yes (Other)
  Sender: FDA-Public Use
  Company Number: None

PATIENT
  Age: 35 Year
  Sex: Female

DRUGS (2)
  1. MS CONTIN [Suspect]
     Active Substance: MORPHINE SULFATE
  2. MORPHABOND ER [Suspect]
     Active Substance: MORPHINE SULFATE

REACTIONS (2)
  - Drug ineffective [None]
  - Drug abuse [None]

NARRATIVE: CASE EVENT DATE: 20190828
